FAERS Safety Report 21872602 (Version 1)
Quarter: 2023Q1

REPORT INFORMATION
  Report Type: Spontaneous
  Country: US (occurrence: None)
  Receive Date: 20230114
  Receipt Date: 20230114
  Transmission Date: 20230417
  Serious: Yes (Death)
  Sender: FDA-Public Use
  Company Number: None

PATIENT
  Age: 80 Year
  Sex: Female

DRUGS (1)
  1. POMALYST [Suspect]
     Active Substance: POMALIDOMIDE
     Indication: Plasma cell myeloma
     Dosage: 1MG QD ORAL
     Route: 048
     Dates: start: 20220727, end: 20221212

REACTIONS (2)
  - Plasma cell myeloma [None]
  - Performance status decreased [None]

NARRATIVE: CASE EVENT DATE: 20221220
